FAERS Safety Report 6794935-2 (Version None)
Quarter: 2010Q2

REPORT INFORMATION
  Report Type: 
  Country: None (occurrence: None)
  Receive Date: 20100625
  Receipt Date: 20100621
  Transmission Date: 20101027
  Serious: Yes (Other)
  Sender: FDA-Public Use
  Company Number: US-SANOFI-AVENTIS-2010SA035248

PATIENT
  Age: 77 Year
  Sex: Male

DRUGS (7)
  1. ELOXATIN [Suspect]
     Route: 051
     Dates: start: 20100601, end: 20100601
  2. XELODA [Suspect]
     Route: 048
  3. INSULIN [Concomitant]
  4. METOPROLOL TARTRATE [Concomitant]
     Dosage: HALF TAB TWICE PER DAY
  5. MIRTAZAPINE [Concomitant]
  6. GLYCERYL TRINITRATE [Concomitant]
  7. WARFARIN SODIUM [Concomitant]

REACTIONS (1)
  - BLINDNESS TRANSIENT [None]
